FAERS Safety Report 10232061 (Version 1)
Quarter: 2014Q2

REPORT INFORMATION
  Report Type: Spontaneous
  Country: JP (occurrence: JP)
  Receive Date: 20140612
  Receipt Date: 20140612
  Transmission Date: 20141212
  Serious: Yes (Other)
  Sender: FDA-Public Use
  Company Number: JP-BRISTOL-MYERS SQUIBB COMPANY-20978185

PATIENT
  Age: 92 Year
  Sex: Male

DRUGS (1)
  1. TAXOL INJ [Suspect]
     Route: 042

REACTIONS (2)
  - Pneumonia [Unknown]
  - White blood cell count decreased [Unknown]
